FAERS Safety Report 10617251 (Version 2)
Quarter: 2014Q4

REPORT INFORMATION
  Report Type: Spontaneous
  Country: FR (occurrence: FR)
  Receive Date: 20141201
  Receipt Date: 20141205
  Transmission Date: 20150529
  Serious: Yes (Hospitalization, Other)
  Sender: FDA-Public Use
  Company Number: FR-GLAXOSMITHKLINE-FR2014GSK026220

PATIENT
  Age: 60 Year
  Sex: Male
  Weight: 87 kg

DRUGS (5)
  1. LAMICTAL [Suspect]
     Active Substance: LAMOTRIGINE
     Indication: DRUG DISPENSING ERROR
     Dosage: 200 MG, QD
     Route: 048
     Dates: start: 20140917, end: 20141008
  2. SPIFEN [Suspect]
     Active Substance: IBUPROFEN
     Indication: DERMATOPHYTOSIS
     Dosage: UNK
     Dates: start: 20140917, end: 20140919
  3. KETODERM [Concomitant]
     Active Substance: KETOCONAZOLE
     Indication: DERMATOPHYTOSIS
  4. NEORAL [Suspect]
     Active Substance: CYCLOSPORINE
     Dosage: UNK
     Dates: start: 20141012
  5. PARIET [Concomitant]
     Active Substance: RABEPRAZOLE SODIUM
     Indication: PROPHYLAXIS

REACTIONS (10)
  - Nasal ulcer [Recovering/Resolving]
  - Anorectal disorder [Unknown]
  - Cholestasis [Unknown]
  - Aphthous stomatitis [Recovering/Resolving]
  - Ocular hyperaemia [Unknown]
  - Genital ulceration [Recovering/Resolving]
  - Scrotal oedema [Unknown]
  - Toxic epidermal necrolysis [Recovering/Resolving]
  - Drug dispensing error [Unknown]
  - Hepatocellular injury [Unknown]

NARRATIVE: CASE EVENT DATE: 20140917
